FAERS Safety Report 12947312 (Version 1)
Quarter: 2016Q4

REPORT INFORMATION
  Report Type: Spontaneous
  Country: US (occurrence: US)
  Receive Date: 20161116
  Receipt Date: 20161116
  Transmission Date: 20170207
  Serious: Yes (Hospitalization)
  Sender: FDA-Public Use
  Company Number: US-PFIZER INC-2016524426

PATIENT
  Age: 88 Year
  Sex: Female

DRUGS (1)
  1. IBRANCE [Suspect]
     Active Substance: PALBOCICLIB
     Indication: BREAST CANCER FEMALE
     Dosage: 100 MG, CYCLIC (DAILY X 21 DAYS THEN OFF 7 DAYS)
     Route: 048
     Dates: start: 20161101

REACTIONS (3)
  - Condition aggravated [Unknown]
  - Pulmonary oedema [Unknown]
  - Dyspnoea [Unknown]
